FAERS Safety Report 5627318-9 (Version None)
Quarter: 2008Q1

REPORT INFORMATION
  Report Type: 
  Country: None (occurrence: None)
  Receive Date: 20080215
  Receipt Date: 20080204
  Transmission Date: 20080703
  Serious: Yes (Other)
  Sender: FDA-Public Use
  Company Number: US-JNJFOC-20080202891

PATIENT
  Sex: Female
  Weight: 61.24 kg

DRUGS (1)
  1. MICRONOR [Suspect]
     Indication: CONTRACEPTION

REACTIONS (4)
  - ABORTION SPONTANEOUS [None]
  - DRUG EXPOSURE DURING PREGNANCY [None]
  - GALACTORRHOEA [None]
  - PREGNANCY ON ORAL CONTRACEPTIVE [None]
